FAERS Safety Report 5457615-1 (Version None)
Quarter: 2007Q3

REPORT INFORMATION
  Report Type: 
  Country: None (occurrence: None)
  Receive Date: 20070918
  Receipt Date: 20070907
  Transmission Date: 20080115
  Serious: No
  Sender: FDA-Public Use
  Company Number: US-BOEHRINGER INGELHEIM PHARMACEUTICALS, INC.-2007-BP-19922BP

PATIENT
  Age: 63 Year
  Sex: Male
  Weight: 92 kg

DRUGS (1)
  1. SPIRIVA [Suspect]
     Route: 055
     Dates: end: 20070516

REACTIONS (1)
  - PROSTATIC SPECIFIC ANTIGEN INCREASED [None]
